FAERS Safety Report 22126762 (Version 1)
Quarter: 2023Q1

REPORT INFORMATION
  Report Type: Report from Study
  Country: CA (occurrence: CA)
  Receive Date: 20230322
  Receipt Date: 20230322
  Transmission Date: 20230418
  Serious: Yes (Life-Threatening, Hospitalization, Other)
  Sender: FDA-Public Use
  Company Number: CA-PFIZER INC-202300122012

PATIENT
  Age: 60 Year
  Sex: Female

DRUGS (7)
  1. METHOTREXATE SODIUM [Suspect]
     Active Substance: METHOTREXATE SODIUM
     Route: 065
  2. COSENTYX [Suspect]
     Active Substance: SECUKINUMAB
     Indication: Psoriasis
     Dosage: 300 MG, MONTHLY
     Route: 058
  3. COSENTYX [Suspect]
     Active Substance: SECUKINUMAB
     Dosage: 300 MG
     Route: 058
  4. COSENTYX [Suspect]
     Active Substance: SECUKINUMAB
     Indication: Psoriasis
     Dosage: 300 MG, MONTHLY
     Route: 058
  5. ACITRETIN [Concomitant]
     Active Substance: ACITRETIN
     Route: 065
  6. NEORAL [Concomitant]
     Active Substance: CYCLOSPORINE
     Route: 065
  7. SORIATANE [Concomitant]
     Active Substance: ACITRETIN
     Route: 065

REACTIONS (14)
  - Blood cholesterol abnormal [Unknown]
  - Drug ineffective [Unknown]
  - Fatigue [Unknown]
  - Intellectual disability [Unknown]
  - Malaise [Unknown]
  - Myocardial infarction [Unknown]
  - Nephrolithiasis [Unknown]
  - Off label use [Unknown]
  - Pain [Unknown]
  - Pain of skin [Unknown]
  - Pruritus [Unknown]
  - Pulmonary mass [Unknown]
  - Renal failure [Unknown]
  - Ulcer [Unknown]
